FAERS Safety Report 6375681-6 (Version None)
Quarter: 2009Q3

REPORT INFORMATION
  Report Type: 
  Country: None (occurrence: None)
  Receive Date: 20090921
  Receipt Date: 20090921
  Transmission Date: 20100115
  Serious: Yes (Other)
  Sender: FDA-Public Use
  Company Number: None

PATIENT
  Sex: Male
  Weight: 95.5 kg

DRUGS (2)
  1. GABAPENTIN [Suspect]
     Indication: NERVE BLOCK
     Dosage: 100 MG @ 2100 EVENING ORAL CAPSULE
     Route: 048
     Dates: start: 20090818
  2. GABAPENTIN [Suspect]
     Dosage: 100 MG X'S 3 TID ORAL CAPSULE
     Route: 048
     Dates: start: 20090819

REACTIONS (5)
  - ARTHRALGIA [None]
  - DEAFNESS [None]
  - FEELING ABNORMAL [None]
  - HEADACHE [None]
  - SLEEP DISORDER [None]
